FAERS Safety Report 5896100-X (Version None)
Quarter: 2008Q3

REPORT INFORMATION
  Report Type: 
  Country: None (occurrence: None)
  Receive Date: 20080924
  Receipt Date: 20080912
  Transmission Date: 20090109
  Serious: Yes (Other)
  Sender: FDA-Public Use
  Company Number: US-PFIZER INC-2008078534

PATIENT
  Sex: Female
  Weight: 53.636 kg

DRUGS (6)
  1. CHANTIX [Suspect]
     Indication: SMOKING CESSATION THERAPY
     Route: 048
     Dates: start: 20080909
  2. KLONOPIN [Concomitant]
     Indication: ANXIETY
  3. SINGULAIR ^DIECKMANN^ [Concomitant]
     Indication: HYPERSENSITIVITY
  4. AMLODIPINE [Concomitant]
  5. ASPIRIN [Concomitant]
  6. MULTI-VITAMINS [Concomitant]

REACTIONS (3)
  - ABNORMAL BEHAVIOUR [None]
  - ILL-DEFINED DISORDER [None]
  - MOOD SWINGS [None]
